FAERS Safety Report 12507083 (Version 1)
Quarter: 2016Q2

REPORT INFORMATION
  Report Type: Spontaneous
  Country: US (occurrence: US)
  Receive Date: 20160629
  Receipt Date: 20160629
  Transmission Date: 20160815
  Serious: No
  Sender: FDA-Public Use
  Company Number: US-TEVA-579786USA

PATIENT
  Sex: Female
  Weight: 101 kg

DRUGS (9)
  1. XANAX [Concomitant]
     Active Substance: ALPRAZOLAM
  2. VICODIN [Concomitant]
     Active Substance: ACETAMINOPHEN\HYDROCODONE BITARTRATE
  3. SIMVASTATIN. [Suspect]
     Active Substance: SIMVASTATIN
     Indication: BLOOD DISORDER
     Route: 065
     Dates: start: 2012, end: 2013
  4. FLEXERIL [Concomitant]
     Active Substance: CYCLOBENZAPRINE HYDROCHLORIDE
  5. PREMARIN [Concomitant]
     Active Substance: ESTROGENS, CONJUGATED
  6. CINNAMON. [Concomitant]
     Active Substance: CINNAMON
  7. ARMOUR THYROID [Concomitant]
     Active Substance: THYROID, PORCINE
  8. FOLIC ACID. [Concomitant]
     Active Substance: FOLIC ACID
  9. KELP [Concomitant]
     Active Substance: KELP

REACTIONS (1)
  - Muscle spasms [Recovered/Resolved]
